FAERS Safety Report 8265536-4 (Version None)
Quarter: 2012Q2

REPORT INFORMATION
  Report Type: 
  Country: None (occurrence: None)
  Receive Date: 20120406
  Receipt Date: 20120403
  Transmission Date: 20120825
  Serious: Yes (Hospitalization)
  Sender: FDA-Public Use
  Company Number: US-PFIZER INC-2012084482

PATIENT
  Sex: Male
  Weight: 95.238 kg

DRUGS (1)
  1. INLYTA [Suspect]
     Indication: RENAL CANCER STAGE IV
     Dosage: 5 MG, 2X/DAY
     Route: 048
     Dates: start: 20120317, end: 20120327

REACTIONS (3)
  - RENAL HAEMORRHAGE [None]
  - GAIT DISTURBANCE [None]
  - FATIGUE [None]
